FAERS Safety Report 17762421 (Version 2)
Quarter: 2020Q2

REPORT INFORMATION
  Report Type: Spontaneous
  Country: PL (occurrence: PL)
  Receive Date: 20200508
  Receipt Date: 20200522
  Transmission Date: 20200714
  Serious: Yes (Hospitalization, Other)
  Sender: FDA-Public Use
  Company Number: PL-MYLANLABS-2020M1041188

PATIENT
  Age: 18 Year
  Sex: Male

DRUGS (11)
  1. VALPROIC ACID. [Suspect]
     Active Substance: VALPROIC ACID
     Indication: MANIA
     Dosage: UP TO 750 MILLIGRAM QD
  2. OLANZAPINE. [Suspect]
     Active Substance: OLANZAPINE
     Indication: MANIA
     Dosage: UP TO 10 MILLIGRAM QD, (UP TO 10 MG/DAY)
  3. LAMOTRIGINE. [Suspect]
     Active Substance: LAMOTRIGINE
     Indication: MOOD SWINGS
  4. VALPROIC ACID. [Suspect]
     Active Substance: VALPROIC ACID
     Indication: DEPRESSION
     Dosage: 900 MILLIGRAM, QD
  5. LAMOTRIGINE. [Suspect]
     Active Substance: LAMOTRIGINE
     Indication: AFFECTIVE DISORDER
     Dosage: UP TO 150 MILLIGRAM, QD
  6. PERAZINE [Suspect]
     Active Substance: PERAZINE
     Indication: MANIA
     Dosage: UP TO 100 MILLIGRAM, QD, (UP TO 100 MG/DAY)
  7. LITHIUM CARBONATE. [Suspect]
     Active Substance: LITHIUM CARBONATE
     Indication: MANIA
     Dosage: UP TO 750 MILLIGRAM, QD
  8. MOCLOBEMIDE [Concomitant]
     Active Substance: MOCLOBEMIDE
     Indication: DEPRESSION
     Dosage: UP TO 225 MILLIGRAM, QD
  9. MOCLOBEMIDE [Concomitant]
     Active Substance: MOCLOBEMIDE
     Dosage: UP TO 150 MILLIGRAM, QD
  10. SODIUM VALPROATE [Suspect]
     Active Substance: VALPROATE SODIUM
     Indication: MANIA
     Dosage: UP TO 900 MILLIGRAM, QD, (AVERAGE LEVEL AFTER 1.5 YEARS: 57.8 UG/ML)
  11. LITHIUM CARBONATE. [Suspect]
     Active Substance: LITHIUM CARBONATE
     Dosage: 1000 MILLIGRAM, QD,  (1000 MG, PER DAY)

REACTIONS (11)
  - Somnolence [Recovering/Resolving]
  - Leukopenia [Unknown]
  - Liver function test increased [Unknown]
  - Tremor [Unknown]
  - Alanine aminotransferase increased [Unknown]
  - Dermatitis allergic [Unknown]
  - Aspartate aminotransferase increased [Unknown]
  - Weight increased [Unknown]
  - Drug ineffective [Unknown]
  - Increased appetite [Recovering/Resolving]
  - Off label use [Unknown]
